FAERS Safety Report 10645601 (Version 1)
Quarter: 2014Q4

REPORT INFORMATION
  Report Type: Spontaneous
  Country: JP (occurrence: None)
  Receive Date: 20141209
  Receipt Date: 20141209
  Transmission Date: 20150529
  Serious: Yes (Other)
  Sender: FDA-Public Use
  Company Number: 2014-20658

PATIENT
  Age: 94 Year
  Sex: Female

DRUGS (3)
  1. EYLEA [Suspect]
     Active Substance: AFLIBERCEPT
     Indication: CHOROIDAL NEOVASCULARISATION
     Route: 031
     Dates: start: 20140918, end: 20141120
  2. GATIFLO (GATIFLOXACIN) [Concomitant]
  3. EYLEA [Suspect]
     Active Substance: AFLIBERCEPT
     Indication: AGE-RELATED MACULAR DEGENERATION
     Route: 031
     Dates: start: 20140918, end: 20141120

REACTIONS (3)
  - Retinal pigment epithelial tear [None]
  - Subretinal fluid [None]
  - Visual acuity reduced [None]

NARRATIVE: CASE EVENT DATE: 20141023
